FAERS Safety Report 18291734 (Version 2)
Quarter: 2020Q3

REPORT INFORMATION
  Report Type: Report from Study
  Country: AU (occurrence: AU)
  Receive Date: 20200922
  Receipt Date: 20200925
  Transmission Date: 20201103
  Serious: Yes (Death, Life-Threatening, Hospitalization, Other)
  Sender: FDA-Public Use
  Company Number: AU-VIIV HEALTHCARE LIMITED-AU2020GSK188668

PATIENT
  Age: 72 Year
  Sex: Male
  Weight: 82.1 kg

DRUGS (8)
  1. BACTRIM DS [Concomitant]
     Active Substance: SULFAMETHOXAZOLE\TRIMETHOPRIM
     Dosage: UNK
     Dates: end: 201809
  2. DOLUTEGRAVIR [Concomitant]
     Active Substance: DOLUTEGRAVIR
     Dosage: 50 MG, BID
  3. ETRAVIRINE [Concomitant]
     Active Substance: ETRAVIRINE
     Dosage: 200 MG, BID
  4. FLUCONAZOLE. [Concomitant]
     Active Substance: FLUCONAZOLE
     Dosage: UNK
     Dates: end: 201809
  5. ROSUVASTATIN. [Concomitant]
     Active Substance: ROSUVASTATIN
     Dosage: 10 MG, QD
  6. FRUSEMIDE [Concomitant]
     Active Substance: FUROSEMIDE
     Dosage: 40 MG, QD
  7. CLEXANE [Concomitant]
     Active Substance: ENOXAPARIN SODIUM
     Dosage: 60 MG, BID
  8. FOSTEMSAVIR [Suspect]
     Active Substance: FOSTEMSAVIR
     Indication: HIV INFECTION
     Dosage: 600 MG, BID

REACTIONS (1)
  - Adenocarcinoma pancreas [Fatal]

NARRATIVE: CASE EVENT DATE: 20190912
